FAERS Safety Report 25505975 (Version 1)
Quarter: 2025Q3

REPORT INFORMATION
  Report Type: Report from Study
  Country: CA (occurrence: CA)
  Receive Date: 20250702
  Receipt Date: 20250702
  Transmission Date: 20251021
  Serious: Yes (Other)
  Sender: REGENERON
  Company Number: CA-BAYER-2025A080214

PATIENT
  Sex: Female

DRUGS (1)
  1. EYLEA HD [Suspect]
     Active Substance: AFLIBERCEPT
     Indication: Diabetic retinal oedema
     Route: 031
     Dates: start: 20250611

REACTIONS (3)
  - Blindness unilateral [Not Recovered/Not Resolved]
  - Endophthalmitis [Unknown]
  - Vision blurred [Recovering/Resolving]

NARRATIVE: CASE EVENT DATE: 20250601
